FAERS Safety Report 20066672 (Version 1)
Quarter: 2021Q4

REPORT INFORMATION
  Report Type: Spontaneous
  Country: HK (occurrence: None)
  Receive Date: 20211115
  Receipt Date: 20211115
  Transmission Date: 20220303
  Serious: Yes (Other)
  Sender: FDA-Public Use
  Company Number: HK-ROCHE-2438388

PATIENT
  Sex: Male

DRUGS (30)
  1. RITUXIMAB [Suspect]
     Active Substance: RITUXIMAB
     Indication: Diffuse large B-cell lymphoma
     Dosage: PART OF R-CHOP
     Route: 065
     Dates: start: 2005, end: 2005
  2. RITUXIMAB [Suspect]
     Active Substance: RITUXIMAB
     Dosage: PART OF R-DHAP
     Route: 065
     Dates: start: 2010, end: 2010
  3. RITUXIMAB [Suspect]
     Active Substance: RITUXIMAB
     Dosage: PART OF R-IMVP16
     Route: 065
     Dates: start: 2013, end: 2013
  4. RITUXIMAB [Suspect]
     Active Substance: RITUXIMAB
     Dosage: PART OF R-GDC
     Route: 065
     Dates: start: 2018, end: 2018
  5. RITUXIMAB [Suspect]
     Active Substance: RITUXIMAB
     Dosage: PART OF R-IMVP16 (RECHALLENGED)
     Route: 065
     Dates: start: 2019, end: 2019
  6. RITUXIMAB [Suspect]
     Active Substance: RITUXIMAB
     Route: 065
     Dates: start: 20180414, end: 20180731
  7. RITUXIMAB [Suspect]
     Active Substance: RITUXIMAB
     Route: 065
     Dates: start: 20190715
  8. CYCLOPHOSPHAMIDE [Suspect]
     Active Substance: CYCLOPHOSPHAMIDE
     Indication: Diffuse large B-cell lymphoma
     Dosage: PART OF R-CHOP
     Route: 065
     Dates: start: 2005, end: 2005
  9. CYCLOPHOSPHAMIDE [Suspect]
     Active Substance: CYCLOPHOSPHAMIDE
     Route: 065
     Dates: start: 20180414, end: 20180731
  10. DOXORUBICIN [Suspect]
     Active Substance: DOXORUBICIN
     Indication: Diffuse large B-cell lymphoma
     Dosage: PART OF R-CHOP
     Route: 065
     Dates: start: 2005, end: 2005
  11. DOXORUBICIN [Suspect]
     Active Substance: DOXORUBICIN
     Route: 065
     Dates: start: 20180414, end: 20180731
  12. VINCRISTINE [Suspect]
     Active Substance: VINCRISTINE
     Indication: Diffuse large B-cell lymphoma
     Dosage: PART OF R-CHOP
     Route: 065
     Dates: start: 2005, end: 2005
  13. VINCRISTINE [Suspect]
     Active Substance: VINCRISTINE
     Route: 065
     Dates: start: 20180414, end: 20180731
  14. PREDNISONE [Suspect]
     Active Substance: PREDNISONE
     Indication: Diffuse large B-cell lymphoma
     Dosage: PART OF R-CHOP
     Route: 065
     Dates: start: 2005, end: 2005
  15. PREDNISONE [Suspect]
     Active Substance: PREDNISONE
     Route: 065
     Dates: start: 20180414, end: 20180731
  16. DEXAMETHASONE [Suspect]
     Active Substance: DEXAMETHASONE
     Indication: Diffuse large B-cell lymphoma
     Dosage: PART OF R-DHAP
     Route: 065
     Dates: start: 2010, end: 2010
  17. DEXAMETHASONE [Suspect]
     Active Substance: DEXAMETHASONE
     Dosage: PART OF R-GDC
     Route: 065
     Dates: start: 2018, end: 2018
  18. DEXAMETHASONE [Suspect]
     Active Substance: DEXAMETHASONE
     Route: 065
     Dates: start: 20190715
  19. CYTARABINE [Suspect]
     Active Substance: CYTARABINE
     Indication: Diffuse large B-cell lymphoma
     Dosage: PART OF R-DHAP
     Route: 065
     Dates: start: 2010, end: 2010
  20. CISPLATIN [Suspect]
     Active Substance: CISPLATIN
     Indication: Diffuse large B-cell lymphoma
     Dosage: PART OF R-DHAP
     Route: 065
     Dates: start: 2010, end: 2010
  21. CISPLATIN [Suspect]
     Active Substance: CISPLATIN
     Route: 065
     Dates: start: 20190715
  22. IFOSFAMIDE [Suspect]
     Active Substance: IFOSFAMIDE
     Indication: Diffuse large B-cell lymphoma
     Dosage: PART OF R-IMVP16
     Route: 065
     Dates: start: 2013, end: 2013
  23. IFOSFAMIDE [Suspect]
     Active Substance: IFOSFAMIDE
     Dosage: PART OF R-IMVP16 (RECHALLENGED)
     Route: 065
     Dates: start: 2019, end: 2019
  24. METHOTREXATE [Suspect]
     Active Substance: METHOTREXATE
     Indication: Diffuse large B-cell lymphoma
     Dosage: PART OF R-IMVP16
     Route: 065
     Dates: start: 2013, end: 2013
  25. METHOTREXATE [Suspect]
     Active Substance: METHOTREXATE
     Dosage: PART OF R-IMVP16 (RECHALLENGED)
     Route: 065
     Dates: start: 2019, end: 2019
  26. ETOPOSIDE [Suspect]
     Active Substance: ETOPOSIDE
     Indication: Diffuse large B-cell lymphoma
     Dosage: PART OF R-IMVP16
     Route: 065
     Dates: start: 2013, end: 2013
  27. ETOPOSIDE [Suspect]
     Active Substance: ETOPOSIDE
     Dosage: PART OF R-IMVP16 (RECHALLENGED)
     Route: 065
     Dates: start: 2019, end: 2019
  28. GEMCITABINE [Suspect]
     Active Substance: GEMCITABINE
     Indication: Diffuse large B-cell lymphoma
     Dosage: PART OF R-GDC
     Route: 065
     Dates: start: 2018, end: 2018
  29. GEMCITABINE [Suspect]
     Active Substance: GEMCITABINE
     Route: 065
     Dates: start: 20190715
  30. CARBOPLATIN [Suspect]
     Active Substance: CARBOPLATIN
     Indication: Diffuse large B-cell lymphoma
     Dosage: PART OF R-GDC
     Route: 065
     Dates: start: 2018, end: 2018

REACTIONS (12)
  - Off label use [Unknown]
  - Intentional product use issue [Unknown]
  - Blood stem cell harvest failure [Unknown]
  - Therapeutic response decreased [Unknown]
  - Neoplasm progression [Unknown]
  - Lymphadenopathy [Unknown]
  - Diffuse large B-cell lymphoma recurrent [Unknown]
  - Drug ineffective [Unknown]
  - Haemoglobin decreased [Unknown]
  - White blood cell count decreased [Unknown]
  - Platelet count decreased [Unknown]
  - Neutrophil count decreased [Unknown]
